FAERS Safety Report 12756582 (Version 1)
Quarter: 2016Q3

REPORT INFORMATION
  Report Type: Spontaneous
  Country: US (occurrence: US)
  Receive Date: 20160917
  Receipt Date: 20160917
  Transmission Date: 20161109
  Serious: No
  Sender: FDA-Public Use
  Company Number: US-ASTRAZENECA-2016SE88488

PATIENT
  Age: 80 Year
  Sex: Male
  Weight: 59.9 kg

DRUGS (4)
  1. SPIRVA  INHALER [Concomitant]
     Route: 055
  2. SYMBICORT [Suspect]
     Active Substance: BUDESONIDE\FORMOTEROL FUMARATE DIHYDRATE
     Indication: CHRONIC OBSTRUCTIVE PULMONARY DISEASE
     Dosage: 160/4.5 TWO PUFFS TWICE PER DAY
     Route: 055
     Dates: start: 2008
  3. SYMBICORT [Suspect]
     Active Substance: BUDESONIDE\FORMOTEROL FUMARATE DIHYDRATE
     Indication: ASTHMA
     Dosage: 160/4.5 TWO PUFFS TWICE PER DAY
     Route: 055
     Dates: start: 2008
  4. VENTOLIN [Concomitant]
     Active Substance: ALBUTEROL SULFATE
     Indication: DYSPNOEA
     Route: 055
     Dates: start: 2008

REACTIONS (4)
  - Dementia [Unknown]
  - Fall [Unknown]
  - Circumstance or information capable of leading to medication error [Unknown]
  - Intentional product misuse [Unknown]

NARRATIVE: CASE EVENT DATE: 2012
